FAERS Safety Report 22989070 (Version 2)
Quarter: 2023Q4

REPORT INFORMATION
  Report Type: Spontaneous
  Country: US (occurrence: US)
  Receive Date: 20230927
  Receipt Date: 20231110
  Transmission Date: 20240109
  Serious: Yes (Other)
  Sender: FDA-Public Use
  Company Number: US-BRISTOL-MYERS SQUIBB COMPANY-2023-134076

PATIENT
  Age: 73 Year
  Sex: Female

DRUGS (1)
  1. LENALIDOMIDE [Suspect]
     Active Substance: LENALIDOMIDE
     Indication: Plasma cell myeloma
     Dosage: TAKE 1 CAPSULE BY MOUTH EVERY DAY FOR 14 DAYS THEN 14 DAYS OFF 28 DAY
     Route: 048
     Dates: start: 20221201

REACTIONS (4)
  - Aortic valve stenosis [Recovering/Resolving]
  - Neutropenia [Recovering/Resolving]
  - Atrial fibrillation [Recovering/Resolving]
  - Off label use [Unknown]
